FAERS Safety Report 16999609 (Version 1)
Quarter: 2019Q4

REPORT INFORMATION
  Report Type: Spontaneous
  Country: CN (occurrence: CN)
  Receive Date: 20191105
  Receipt Date: 20191105
  Transmission Date: 20200122
  Serious: Yes (Disabling, Other)
  Sender: FDA-Public Use
  Company Number: CN-BAXTER-2019BAX021874

PATIENT
  Age: 61 Year
  Sex: Male
  Weight: 55 kg

DRUGS (22)
  1. ENDOXAN [Suspect]
     Active Substance: CYCLOPHOSPHAMIDE
     Indication: MANTLE CELL LYMPHOMA
     Dosage: ENDOXAN 1 G + SODIUM CHLORIDE (NS) 100 ML
     Route: 041
     Dates: start: 20191007, end: 20191007
  2. 0.9% SODIUM CHLORIDE INJECTION [Suspect]
     Active Substance: SODIUM CHLORIDE
     Dosage: DOSE RE-INTRODUCED. NS + MABTHERA
     Route: 041
     Dates: start: 201910, end: 201910
  3. SODIUM CHLORIDE. [Suspect]
     Active Substance: SODIUM CHLORIDE
     Dosage: WANKE 1.8 MG + NS 3 ML
     Route: 058
     Dates: start: 20191011, end: 20191011
  4. MABTHERA [Suspect]
     Active Substance: RITUXIMAB
     Dosage: MABTHERA 0.5 G + NS 500 ML
     Route: 041
     Dates: start: 20191006, end: 20191006
  5. SODIUM CHLORIDE. [Suspect]
     Active Substance: SODIUM CHLORIDE
     Dosage: WANKE 1.8 MG + NS 3 ML
     Route: 058
     Dates: start: 20191015, end: 20191015
  6. 0.9% SODIUM CHLORIDE INJECTION [Suspect]
     Active Substance: SODIUM CHLORIDE
     Dosage: NS 500 ML + MABTHERA 0.5 G
     Route: 041
     Dates: start: 20191006, end: 20191006
  7. 5% GLUCOSE  INJECTION [Suspect]
     Active Substance: DEXTROSE
     Dosage: DOSE RE-INTRODUCED. PIRARUBICIN HYDROCHLORIDE + 5% GS
     Route: 041
     Dates: start: 201910, end: 201910
  8. WANKE [BORTEZOMIB] [Suspect]
     Active Substance: BORTEZOMIB
     Dosage: DOSAGE FORM: FREEZE-DRYING PREPARATION FOR INJECTION, WANKE 1.8 MG + NS 3 ML
     Route: 058
     Dates: start: 20191015, end: 20191015
  9. 0.9% SODIUM CHLORIDE INJECTION [Suspect]
     Active Substance: SODIUM CHLORIDE
     Dosage: NS 100 ML + ENDOXAN 1 G
     Route: 041
     Dates: start: 20191007, end: 20191007
  10. MABTHERA [Suspect]
     Active Substance: RITUXIMAB
     Dosage: DOSE RE-INTRODUCED. MABTHERA + NS
     Route: 041
     Dates: start: 201910, end: 201910
  11. WANKE [BORTEZOMIB] [Suspect]
     Active Substance: BORTEZOMIB
     Dosage: DOSE RE-INTRODUCED. DOSAGE FORM: FREEZE-DRYING PREPARATION FOR INJECTION, WANKE 1.8 MG + NS 3 ML
     Route: 058
     Dates: start: 20191022, end: 20191022
  12. SODIUM CHLORIDE. [Suspect]
     Active Substance: SODIUM CHLORIDE
     Dosage: DOSE RE-INTRODUCED. WANKE 1.8 MG + NS 3 ML
     Route: 058
     Dates: start: 20191022, end: 20191022
  13. 5% GLUCOSE  INJECTION [Suspect]
     Active Substance: DEXTROSE
     Indication: MEDICATION DILUTION
     Dosage: PIRARUBICIN HYDROCHLORIDE 50 MG + 5% GLUCOSE (GS) 100 ML
     Route: 041
     Dates: start: 20191007, end: 20191007
  14. WANKE [BORTEZOMIB] [Suspect]
     Active Substance: BORTEZOMIB
     Dosage: DOSAGE FORM: FREEZE-DRYING PREPARATION FOR INJECTION, WANKE 1.8 MG + NS 3 ML
     Route: 058
     Dates: start: 20191011, end: 20191011
  15. SODIUM CHLORIDE. [Suspect]
     Active Substance: SODIUM CHLORIDE
     Indication: MEDICATION DILUTION
     Dosage: WANKE 1.8 MG + NS 3 ML
     Route: 058
     Dates: start: 20191007, end: 20191007
  16. 0.9% SODIUM CHLORIDE INJECTION [Suspect]
     Active Substance: SODIUM CHLORIDE
     Dosage: DOSE RE-INTRODUCED. NS + ENDOXAN
     Route: 041
     Dates: start: 201910, end: 201910
  17. ENDOXAN [Suspect]
     Active Substance: CYCLOPHOSPHAMIDE
     Dosage: DOSE RE-INTRODUCED. ENDOXAN + NS
     Route: 041
     Dates: start: 201910, end: 201910
  18. 0.9% SODIUM CHLORIDE INJECTION [Suspect]
     Active Substance: SODIUM CHLORIDE
     Indication: MEDICATION DILUTION
     Dosage: NS 100 ML + MABTHERA 0.1 G
     Route: 041
     Dates: start: 20191006, end: 20191006
  19. PIRARUBICIN HYDROCHLORIDE [Suspect]
     Active Substance: PIRARUBICIN HYDROCHLORIDE
     Indication: MANTLE CELL LYMPHOMA
     Dosage: PIRARUBICIN HYDROCHLORIDE 50 MG + 5% GS 100 ML
     Route: 041
     Dates: start: 20191007, end: 20191007
  20. MABTHERA [Suspect]
     Active Substance: RITUXIMAB
     Indication: MANTLE CELL LYMPHOMA
     Dosage: MABTHERA 0.1 G + NS 100 ML
     Route: 041
     Dates: start: 20191006, end: 20191006
  21. WANKE [BORTEZOMIB] [Suspect]
     Active Substance: BORTEZOMIB
     Indication: MANTLE CELL LYMPHOMA
     Dosage: DOSAGE FORM: FREEZE-DRYING PREPARATION FOR INJECTION, WANKE 1.8 MG + NS 3 ML
     Route: 058
     Dates: start: 20191007, end: 20191007
  22. PIRARUBICIN HYDROCHLORIDE [Suspect]
     Active Substance: PIRARUBICIN HYDROCHLORIDE
     Dosage: DOSE RE-INTRODUCED. PIRARUBICIN HYDROCHLORIDE + 5% GS
     Route: 041
     Dates: start: 201910, end: 201910

REACTIONS (3)
  - Leukopenia [Recovered/Resolved]
  - Thrombocytopenia [Recovered/Resolved]
  - Neutropenia [Recovered/Resolved]

NARRATIVE: CASE EVENT DATE: 20191014
